FAERS Safety Report 15588001 (Version 1)
Quarter: 2018Q4

REPORT INFORMATION
  Report Type: Spontaneous
  Country: US (occurrence: US)
  Receive Date: 20181105
  Receipt Date: 20181105
  Transmission Date: 20190205
  Serious: Yes (Other)
  Sender: FDA-Public Use
  Company Number: PHEH2018US045637

PATIENT
  Sex: Female

DRUGS (2)
  1. VOTRIENT [Suspect]
     Active Substance: PAZOPANIB HYDROCHLORIDE
     Indication: VON HIPPEL-LINDAU DISEASE
     Dosage: 200 MG, QD (200MG PER DAY)
     Route: 065
  2. VOTRIENT [Suspect]
     Active Substance: PAZOPANIB HYDROCHLORIDE
     Indication: PHAKOMATOSIS
     Dosage: 3 DF, QD (TOTAL 600 MG)
     Route: 065

REACTIONS (7)
  - Neoplasm progression [Unknown]
  - Hair colour changes [Unknown]
  - Blister [Unknown]
  - Pain in extremity [Unknown]
  - Nausea [Unknown]
  - Product use in unapproved indication [Unknown]
  - Fatigue [Unknown]
